FAERS Safety Report 4966373-6 (Version None)
Quarter: 2006Q2

REPORT INFORMATION
  Report Type: 
  Country: None (occurrence: None)
  Receive Date: 20060403
  Receipt Date: 20060320
  Transmission Date: 20061013
  Serious: Yes (Other)
  Sender: FDA-Public Use
  Company Number: 2006039172

PATIENT
  Age: 68 Year
  Sex: Female

DRUGS (2)
  1. PREDNISONE TAB [Suspect]
     Indication: RHEUMATOID ARTHRITIS
  2. INFLIXIMAB              (INFLIXIMAB) [Suspect]
     Indication: RHEUMATOID ARTHRITIS

REACTIONS (4)
  - BLOOD IMMUNOGLOBULIN G DECREASED [None]
  - EMPYEMA [None]
  - HAEMOPHILUS INFECTION [None]
  - STREPTOCOCCAL INFECTION [None]
